FAERS Safety Report 8195425-5 (Version None)
Quarter: 2012Q1

REPORT INFORMATION
  Report Type: 
  Country: None (occurrence: None)
  Receive Date: 20120308
  Receipt Date: 20120224
  Transmission Date: 20120608
  Serious: Yes (Hospitalization)
  Sender: FDA-Public Use
  Company Number: PHFR2012GB001103

PATIENT
  Age: 69 Year
  Sex: Male

DRUGS (9)
  1. SALBUTAMOL INHALANT [Concomitant]
     Indication: ASTHMA
     Route: 045
  2. TEGRETOL [Suspect]
     Indication: EPILEPSY
     Dosage: 100 MG, BID
     Route: 048
  3. TEGRETOL [Suspect]
     Dosage: 200 MG, BID
     Route: 048
     Dates: start: 20111122
  4. TEGRETOL [Suspect]
     Dosage: 800 MG, DAILY
     Route: 048
     Dates: start: 20120129
  5. ASPIRIN [Concomitant]
     Indication: BLOOD DISORDER
     Dosage: 75 MG, DAILY
     Route: 048
     Dates: start: 20030101
  6. LANSOPRAZOLE [Concomitant]
     Indication: DYSPEPSIA
     Dosage: 15 MG, DAILY
     Route: 048
  7. ATORVASTATIN [Concomitant]
     Indication: BLOOD CHOLESTEROL
     Dosage: 80 MG, DAILY
     Route: 048
  8. IRBESARTAN [Concomitant]
     Indication: CORONARY ARTERY DISEASE
     Dosage: 225 MG, DAILY
     Route: 048
  9. BISOPROLOL FUMARATE [Concomitant]
     Indication: BLOOD PRESSURE
     Dosage: 7.5 MG, DAILY
     Route: 048

REACTIONS (9)
  - NIGHT SWEATS [None]
  - CHEST PAIN [None]
  - SLEEP DISORDER [None]
  - ANXIETY [None]
  - INCORRECT DOSE ADMINISTERED [None]
  - DRUG DISPENSING ERROR [None]
  - SCREAMING [None]
  - AGITATION [None]
  - HEADACHE [None]
